FAERS Safety Report 16761139 (Version 1)
Quarter: 2019Q3

REPORT INFORMATION
  Report Type: Spontaneous
  Country: US (occurrence: US)
  Receive Date: 20190830
  Receipt Date: 20190830
  Transmission Date: 20191005
  Serious: Yes (Other)
  Sender: FDA-Public Use
  Company Number: US-ANIPHARMA-2019-US-001242

PATIENT
  Age: 69 Year
  Sex: Female
  Weight: 75.3 kg

DRUGS (3)
  1. FASLODEX [Suspect]
     Active Substance: FULVESTRANT
     Dosage: 500 MILLIGRAMS MONTHLY
     Route: 030
     Dates: start: 201804, end: 201808
  2. ANASTROZOLE. [Suspect]
     Active Substance: ANASTROZOLE
     Indication: BREAST CANCER METASTATIC
     Dosage: 2.5 MG DAILY
     Route: 048
     Dates: start: 201608, end: 201808
  3. SYNTHROID [Concomitant]
     Active Substance: LEVOTHYROXINE SODIUM
     Dosage: 0.05 MILLIGRAMS DAILY
     Route: 048
     Dates: start: 201707

REACTIONS (3)
  - Off label use [Recovered/Resolved]
  - Tumour marker increased [Unknown]
  - Disease progression [Unknown]

NARRATIVE: CASE EVENT DATE: 201608
